FAERS Safety Report 9058786 (Version 1)
Quarter: 2013Q1

REPORT INFORMATION
  Report Type: Other
  Country: US (occurrence: US)
  Receive Date: 20130204
  Receipt Date: 20130204
  Transmission Date: 20140127
  Serious: Yes (Other)
  Sender: FDA-Public Use
  Company Number: US-BRISTOL-MYERS SQUIBB COMPANY-17328949

PATIENT
  Age: 62 Year
  Sex: Male

DRUGS (12)
  1. METFORMIN HCL [Suspect]
     Indication: DIABETES MELLITUS
  2. LENALIDOMIDE [Suspect]
     Indication: PLASMA CELL MYELOMA
     Dates: start: 201001
  3. DEXAMETHASONE [Concomitant]
     Indication: PLASMA CELL MYELOMA
  4. ASPIRIN [Concomitant]
     Dates: start: 200702
  5. VITAMIN B [Concomitant]
  6. GABAPENTIN [Concomitant]
  7. HYDROCODONE [Concomitant]
  8. OMEPRAZOLE [Concomitant]
  9. SIMVASTATIN [Concomitant]
  10. IBUPROFEN [Concomitant]
  11. ZOLPIDEM [Concomitant]
  12. ACETAMINOPHEN [Concomitant]

REACTIONS (3)
  - Pulmonary toxicity [Recovered/Resolved]
  - Abasia [Recovered/Resolved]
  - Activities of daily living impaired [Recovered/Resolved]
